FAERS Safety Report 5654451-8 (Version None)
Quarter: 2008Q1

REPORT INFORMATION
  Report Type: 
  Country: None (occurrence: None)
  Receive Date: 20080305
  Receipt Date: 20080221
  Transmission Date: 20080703
  Serious: Yes (Hospitalization, Other)
  Sender: FDA-Public Use
  Company Number: 430014K05USA

PATIENT
  Age: 35 Year
  Sex: Female
  Weight: 47.1741 kg

DRUGS (2)
  1. NOVANTRONE [Suspect]
     Indication: MULTIPLE SCLEROSIS
     Dosage: 10 MG/M2, 1 IN 3 MONTHS, INTRAVENOUS
     Route: 042
     Dates: start: 20001130, end: 20020109
  2. REBIF [Concomitant]

REACTIONS (12)
  - AORTIC VALVE INCOMPETENCE [None]
  - CARDIAC ARREST [None]
  - CARDIAC FAILURE [None]
  - CARDIOMYOPATHY [None]
  - INFLUENZA [None]
  - LEFT ATRIAL DILATATION [None]
  - MALIGNANT MELANOMA [None]
  - MITRAL VALVE INCOMPETENCE [None]
  - PERITONEAL DIALYSIS [None]
  - PULMONARY HYPERTENSION [None]
  - RENAL FAILURE [None]
  - TRICUSPID VALVE INCOMPETENCE [None]
